FAERS Safety Report 4548409-X (Version None)
Quarter: 2005Q1

REPORT INFORMATION
  Report Type: 
  Country: None (occurrence: None)
  Receive Date: 20050106
  Receipt Date: 20050106
  Transmission Date: 20050727
  Serious: Yes (Hospitalization)
  Sender: FDA-Public Use
  Company Number: None

PATIENT
  Age: 56 Year
  Sex: Male
  Weight: 84.8 kg

DRUGS (8)
  1. PLAVIX [Suspect]
     Indication: PERIPHERAL ARTERY ANGIOPLASTY
     Dosage: 75MG ONCE DAILY
     Dates: start: 20041118, end: 20041122
  2. PLAVIX [Suspect]
     Indication: THROMBOSIS PROPHYLAXIS
     Dosage: 75MG ONCE DAILY
     Dates: start: 20041118, end: 20041122
  3. LOTREL [Concomitant]
  4. ZOCOR [Concomitant]
  5. PLAVIX [Concomitant]
  6. ATENOLOL [Concomitant]
  7. ASPIRIN [Concomitant]
  8. PAXIL [Concomitant]

REACTIONS (3)
  - HAEMOTHORAX [None]
  - PLEURAL EFFUSION [None]
  - PULMONARY HAEMORRHAGE [None]
